FAERS Safety Report 17192218 (Version 2)
Quarter: 2020Q1

REPORT INFORMATION
  Report Type: Spontaneous
  Country: BR (occurrence: BR)
  Receive Date: 20191223
  Receipt Date: 20200102
  Transmission Date: 20200409
  Serious: Yes (Other)
  Sender: FDA-Public Use
  Company Number: BR-SA-2019SA343138

PATIENT
  Age: 63 Year
  Sex: Female
  Weight: 66 kg

DRUGS (14)
  1. SIMVASTATIN. [Concomitant]
     Active Substance: SIMVASTATIN
     Indication: BLOOD CHOLESTEROL INCREASED
     Dosage: 1 DF, QD
     Route: 048
  2. LOZEPREL [Concomitant]
     Active Substance: OMEPRAZOLE
     Indication: GASTROINTESTINAL DISORDER
     Dosage: 2 DF, QD
     Route: 048
  3. NOVORAPID [Concomitant]
     Active Substance: INSULIN ASPART
     Indication: DIABETES MELLITUS
     Dosage: 2 IU, QD (BEFORE LUNCH)
     Route: 065
  4. LOSARTAN. [Concomitant]
     Active Substance: LOSARTAN
     Indication: HYPERTENSION
     Dosage: UNK UNK, BID
     Route: 048
  5. ESCITALOPRAM OXALATE. [Concomitant]
     Active Substance: ESCITALOPRAM OXALATE
     Indication: DEPRESSION
     Dosage: 1 DF, QD
     Route: 048
  6. FOXIS [CELECOXIB] [Concomitant]
     Indication: BONE PAIN
  7. HYDROCHLOROTHIAZIDE. [Concomitant]
     Active Substance: HYDROCHLOROTHIAZIDE
     Indication: MICTURITION DISORDER
     Dosage: 1 DF, QD
     Route: 048
  8. CLONAZEPAM. [Concomitant]
     Active Substance: CLONAZEPAM
     Indication: SLEEP DISORDER
     Dosage: 1 DF, QD
     Route: 048
  9. FOXIS [CELECOXIB] [Concomitant]
     Indication: ARTHRALGIA
     Dosage: 1 DF, QD
     Route: 048
  10. GLIFAGE [Concomitant]
     Active Substance: METFORMIN HYDROCHLORIDE
     Indication: TYPE 2 DIABETES MELLITUS
     Dosage: 1 DF, TID
     Route: 048
  11. LEVOTHYROXINE. [Concomitant]
     Active Substance: LEVOTHYROXINE
     Indication: THYROID DISORDER
     Dosage: UNK
     Route: 048
  12. LANTUS [Suspect]
     Active Substance: INSULIN GLARGINE
     Indication: TYPE 2 DIABETES MELLITUS
     Dosage: 28 IU, UNK
     Route: 058
  13. LANTUS [Suspect]
     Active Substance: INSULIN GLARGINE
     Dosage: 28 IU, QD (IN MORNING)
     Route: 058
     Dates: start: 20191213
  14. ALGINAC [Concomitant]
     Active Substance: CYANOCOBALAMIN\DICLOFENAC SODIUM\PYRIDOXINE HYDROCHLORIDE\THIAMINE MONONITRATE
     Indication: BONE PAIN
     Dosage: 1 DF, HS
     Route: 048

REACTIONS (13)
  - Blood glucose decreased [Unknown]
  - Muscular weakness [Not Recovered/Not Resolved]
  - Memory impairment [Not Recovered/Not Resolved]
  - Malaise [Unknown]
  - Renal failure [Not Recovered/Not Resolved]
  - Hypertension [Recovered/Resolved]
  - Vomiting [Unknown]
  - Headache [Unknown]
  - Drug dependence [Unknown]
  - Crying [Unknown]
  - Gait disturbance [Unknown]
  - Nervousness [Unknown]
  - Blood glucose increased [Not Recovered/Not Resolved]

NARRATIVE: CASE EVENT DATE: 20191212
